FAERS Safety Report 5630982-1 (Version None)
Quarter: 2008Q1

REPORT INFORMATION
  Report Type: 
  Country: None (occurrence: None)
  Receive Date: 20080219
  Receipt Date: 20080207
  Transmission Date: 20080703
  Serious: Yes (Hospitalization, Other)
  Sender: FDA-Public Use
  Company Number: CA-ELI_LILLY_AND_COMPANY-CA200802001747

PATIENT
  Age: 78 Year
  Sex: Female

DRUGS (8)
  1. FORTEO [Suspect]
     Indication: OSTEOPOROSIS
     Dosage: 20 UG, DAILY (1/D)
     Route: 058
     Dates: start: 20070303
  2. WARFARIN SODIUM [Concomitant]
  3. TRIAZIDE [Concomitant]
  4. METOPROLOL TARTRATE [Concomitant]
  5. COZAAR [Concomitant]
  6. CALTRATE +D [Concomitant]
  7. GLUCOSAMINE [Concomitant]
  8. MULTIVITE [Concomitant]

REACTIONS (4)
  - FATIGUE [None]
  - HAEMOGLOBIN DECREASED [None]
  - HEART RATE INCREASED [None]
  - NAUSEA [None]
